FAERS Safety Report 5101730-9 (Version None)
Quarter: 2006Q3

REPORT INFORMATION
  Report Type: 
  Country: None (occurrence: None)
  Receive Date: 20060731
  Receipt Date: 20060518
  Transmission Date: 20061208
  Serious: No
  Sender: FDA-Public Use
  Company Number: 2006PV014061

PATIENT
  Age: 41 Year
  Sex: Male
  Weight: 98.4306 kg

DRUGS (7)
  1. BYETTA [Suspect]
     Indication: DIABETES MELLITUS NON-INSULIN-DEPENDENT
     Dosage: SEE IMAGE
     Route: 058
     Dates: start: 20060301, end: 20060510
  2. BYETTA [Suspect]
     Indication: DIABETES MELLITUS NON-INSULIN-DEPENDENT
     Dosage: SEE IMAGE
     Route: 058
     Dates: start: 20060511
  3. LANTUS [Suspect]
     Indication: DIABETES MELLITUS NON-INSULIN-DEPENDENT
     Dosage: SC
     Route: 058
     Dates: end: 20060401
  4. GLIPIZIDE [Suspect]
     Indication: DIABETES MELLITUS NON-INSULIN-DEPENDENT
     Dosage: SEE IMAGE
     Route: 048
     Dates: end: 20060401
  5. GLIPIZIDE [Suspect]
     Indication: DIABETES MELLITUS NON-INSULIN-DEPENDENT
     Dosage: SEE IMAGE
     Route: 048
     Dates: start: 20060401
  6. METFORMIN HCL [Concomitant]
  7. ACTOS [Concomitant]

REACTIONS (11)
  - BLOOD GLUCOSE DECREASED [None]
  - BLOOD GLUCOSE INCREASED [None]
  - DIZZINESS [None]
  - DYSPEPSIA [None]
  - ENERGY INCREASED [None]
  - FEELING COLD [None]
  - HYPERHIDROSIS [None]
  - NAUSEA [None]
  - SINUSITIS [None]
  - TREMOR [None]
  - VOMITING [None]
